FAERS Safety Report 14265708 (Version 15)
Quarter: 2019Q2

REPORT INFORMATION
  Report Type: Spontaneous
  Country: DE (occurrence: DE)
  Receive Date: 20171208
  Receipt Date: 20190509
  Transmission Date: 20190711
  Serious: Yes (Life-Threatening, Hospitalization, Disabling, Other)
  Sender: FDA-Public Use
  Company Number: DE-BAUSCH-BL-2017-032550

PATIENT
  Age: 69 Year
  Sex: Male
  Weight: 90 kg

DRUGS (41)
  1. DEXAMETHASONE. [Suspect]
     Active Substance: DEXAMETHASONE
     Route: 048
     Dates: start: 20180516, end: 20180604
  2. DEXAMETHASONE. [Suspect]
     Active Substance: DEXAMETHASONE
     Route: 048
     Dates: start: 20180724, end: 20180806
  3. VEMURAFENIB. [Suspect]
     Active Substance: VEMURAFENIB
     Route: 048
     Dates: start: 20170907, end: 20180618
  4. RAMIPRIL. [Concomitant]
     Active Substance: RAMIPRIL
     Indication: HYPERTENSION
     Dosage: MOST RECENT DOSE 02/NOV/2017
     Route: 048
     Dates: start: 20140501, end: 20171102
  5. VOMEX A [Concomitant]
     Active Substance: DIMENHYDRINATE
     Indication: PROPHYLAXIS OF NAUSEA AND VOMITING
  6. DEXAMETHASONE. [Suspect]
     Active Substance: DEXAMETHASONE
     Route: 048
     Dates: start: 20180607, end: 20180611
  7. COBIMETINIB. [Suspect]
     Active Substance: COBIMETINIB
     Route: 048
     Dates: start: 20180423, end: 20180514
  8. VEMURAFENIB. [Suspect]
     Active Substance: VEMURAFENIB
     Route: 048
     Dates: start: 20170904, end: 20170906
  9. DEXAMETHASONE. [Suspect]
     Active Substance: DEXAMETHASONE
     Dosage: DAILY (1)
     Route: 031
     Dates: start: 20170929
  10. FERRO SANOL [Concomitant]
     Active Substance: FERROUS GLYCINE SULFATE
     Indication: PROPHYLAXIS
     Dosage: PROPHYLAXIS OF IRON
     Route: 048
     Dates: start: 20180122
  11. DEXAMETHASONE. [Suspect]
     Active Substance: DEXAMETHASONE
     Route: 048
     Dates: start: 20170922, end: 20180123
  12. DEXAMETHASONE. [Suspect]
     Active Substance: DEXAMETHASONE
     Route: 048
     Dates: start: 20180807, end: 20180820
  13. COBIMETINIB. [Suspect]
     Active Substance: COBIMETINIB
     Indication: MALIGNANT MELANOMA
     Route: 048
     Dates: start: 20170831, end: 20170903
  14. VEMURAFENIB. [Suspect]
     Active Substance: VEMURAFENIB
     Route: 048
     Dates: start: 20170827, end: 20170828
  15. DEXAMETHASONE. [Suspect]
     Active Substance: DEXAMETHASONE
     Indication: BRAIN OEDEMA
     Dosage: DAILY (1)
     Route: 031
     Dates: start: 20170929
  16. RAMIPRIL. [Concomitant]
     Active Substance: RAMIPRIL
     Indication: VASCULAR GRAFT
  17. SIMVASTATIN. [Concomitant]
     Active Substance: SIMVASTATIN
     Indication: HYPERTENSION
  18. METOPROLOL. [Concomitant]
     Active Substance: METOPROLOL
     Indication: HYPERTENSION
  19. DEXAMETHASONE. [Suspect]
     Active Substance: DEXAMETHASONE
     Indication: PROCEDURAL HEADACHE
     Route: 048
     Dates: start: 20170901, end: 20170903
  20. COBIMETINIB. [Suspect]
     Active Substance: COBIMETINIB
     Indication: METASTATIC MALIGNANT MELANOMA
     Dosage: DOSE 20 MG X 3 (60 MG)
     Route: 048
     Dates: start: 20170823, end: 20170828
  21. DEXAMETHASONE. [Suspect]
     Active Substance: DEXAMETHASONE
     Route: 048
     Dates: start: 20180710, end: 20180723
  22. COBIMETINIB. [Suspect]
     Active Substance: COBIMETINIB
     Route: 048
     Dates: start: 20170904, end: 20180327
  23. METOPROLOL. [Concomitant]
     Active Substance: METOPROLOL
     Indication: HYPERTENSION
     Dosage: 12 HOURS
     Route: 048
     Dates: start: 20140501
  24. DEXAMETHASONE. [Suspect]
     Active Substance: DEXAMETHASONE
     Indication: PROCEDURAL NAUSEA
     Route: 048
     Dates: start: 20170828, end: 20170831
  25. SIMVASTATIN. [Concomitant]
     Active Substance: SIMVASTATIN
     Indication: VASCULAR GRAFT
     Route: 048
     Dates: start: 20150501
  26. ACETYLSALICYLIC ACID [Concomitant]
     Active Substance: ASPIRIN
     Indication: VASCULAR GRAFT
     Route: 048
     Dates: start: 20140501
  27. ACETYLSALICYLIC ACID [Concomitant]
     Active Substance: ASPIRIN
     Indication: HYPERTENSION
  28. DEXAMETHASONE. [Suspect]
     Active Substance: DEXAMETHASONE
     Route: 048
     Dates: start: 20180612, end: 20180709
  29. VEMURAFENIB. [Suspect]
     Active Substance: VEMURAFENIB
     Indication: MALIGNANT MELANOMA
     Dosage: DOSE 240 MG X 4 (960 MG)
     Route: 048
     Dates: start: 20170823, end: 20170826
  30. VEMURAFENIB. [Suspect]
     Active Substance: VEMURAFENIB
     Route: 048
     Dates: start: 20170831, end: 20170903
  31. LEVETIRACETAM. [Concomitant]
     Active Substance: LEVETIRACETAM
     Indication: METASTASES TO CENTRAL NERVOUS SYSTEM
     Dosage: 12 HOURS
     Route: 048
  32. MONO EMBOLEX [Concomitant]
     Active Substance: CERTOPARIN SODIUM
     Indication: PROPHYLAXIS
     Dosage: INDICATION: EMBOLISM PROPHYLAXIS BECAUSE OF CORONARY HEART DISEASE
     Route: 058
     Dates: start: 20170131
  33. VOMEX A [Concomitant]
     Active Substance: DIMENHYDRINATE
     Indication: PAIN
     Dosage: IN CASE OF NAUSEA MAX. 3 TIMES PER DAY
     Route: 065
     Dates: start: 20180620
  34. DEXAMETHASONE. [Suspect]
     Active Substance: DEXAMETHASONE
     Indication: PROCEDURAL VOMITING
     Route: 048
     Dates: start: 20170904, end: 20170921
  35. DEXAMETHASONE. [Suspect]
     Active Substance: DEXAMETHASONE
     Route: 048
     Dates: start: 20180124, end: 20180220
  36. DEXAMETHASONE. [Suspect]
     Active Substance: DEXAMETHASONE
     Route: 048
     Dates: start: 20180409, end: 20180515
  37. DEXAMETHASONE. [Suspect]
     Active Substance: DEXAMETHASONE
     Route: 048
     Dates: start: 20170929
  38. DEXAMETHASONE. [Suspect]
     Active Substance: DEXAMETHASONE
     Route: 048
     Dates: start: 20180604, end: 20180606
  39. NOVAMINSULFON [Concomitant]
     Active Substance: METAMIZOLE
     Indication: PAIN PROPHYLAXIS
     Route: 048
  40. PANTOPRAZOL [Concomitant]
     Active Substance: PANTOPRAZOLE SODIUM
     Indication: PROPHYLAXIS
     Route: 048
     Dates: start: 20170201
  41. FOLVERLAN [Concomitant]
     Active Substance: FOLIC ACID
     Indication: PRODUCT USED FOR UNKNOWN INDICATION
     Dosage: UNIT DOSE: ONE (UNSPECIFIED UNIT), PROPHYLAXIS OF FOLATE STORAGE
     Route: 048
     Dates: start: 20180122

REACTIONS (36)
  - Metastases to central nervous system [Unknown]
  - Cataract [Not Recovered/Not Resolved]
  - Vision blurred [Not Recovered/Not Resolved]
  - Dizziness [Unknown]
  - Skin infection [Unknown]
  - Retinopathy [Unknown]
  - Lymphoedema [Unknown]
  - Cerebral ischaemia [Unknown]
  - Subcutaneous abscess [Recovered/Resolved]
  - Pain in extremity [Not Recovered/Not Resolved]
  - Epidural lipomatosis [Unknown]
  - Pulmonary embolism [Unknown]
  - Retinal cyst [Not Recovered/Not Resolved]
  - Brain oedema [Not Recovered/Not Resolved]
  - Dysgeusia [Unknown]
  - Spinal osteoarthritis [Unknown]
  - Epilepsy [Unknown]
  - Peripheral motor neuropathy [Unknown]
  - Conjunctivitis [Not Recovered/Not Resolved]
  - Mucosal dryness [Unknown]
  - Skin mass [Unknown]
  - Hyperkeratosis [Unknown]
  - Intervertebral disc protrusion [Unknown]
  - Peripheral nerve lesion [Unknown]
  - Small intestinal haemorrhage [Recovered/Resolved]
  - Hyperglycaemia [Recovering/Resolving]
  - Fatigue [Not Recovered/Not Resolved]
  - Monoparesis [Not Recovered/Not Resolved]
  - Skin hypopigmentation [Not Recovered/Not Resolved]
  - Cough [Unknown]
  - Photosensitivity reaction [Unknown]
  - Peripheral sensory neuropathy [Unknown]
  - Dermal cyst [Not Recovered/Not Resolved]
  - Skin exfoliation [Unknown]
  - Pyrexia [Recovered/Resolved]
  - Muscular weakness [Unknown]

NARRATIVE: CASE EVENT DATE: 20170823
